FAERS Safety Report 9155359 (Version 1)
Quarter: 2013Q1

REPORT INFORMATION
  Report Type: Report from Study
  Country: JP (occurrence: JP)
  Receive Date: 20130311
  Receipt Date: 20130311
  Transmission Date: 20140127
  Serious: Yes (Other)
  Sender: FDA-Public Use
  Company Number: JP-BRISTOL-MYERS SQUIBB COMPANY-17449497

PATIENT
  Age: 68 Year
  Sex: Female
  Weight: 69 kg

DRUGS (7)
  1. SPRYCEL [Suspect]
     Indication: CHRONIC MYELOID LEUKAEMIA
     Dosage: 1DF:?100MG/D:18MY-28JL09,17AG09-2AP10,17AP-7DC10,20DC-22FB11,8MR-26AG11
     Route: 048
     Dates: start: 20090518
  2. HYDROXYUREA [Suspect]
     Dates: start: 20081107, end: 20090529
  3. MOHRUS [Concomitant]
     Indication: PRE-EXISTING DISEASE
     Route: 061
     Dates: start: 20090308, end: 20091208
  4. LOXONIN [Concomitant]
     Indication: PRE-EXISTING DISEASE
     Route: 048
     Dates: start: 20090602, end: 20091208
  5. PREDONINE [Concomitant]
     Indication: PRE-EXISTING DISEASE
     Dosage: 5MG/D:22DEC09-02APR10
     Route: 048
     Dates: start: 20090804, end: 20091221
  6. MUCOSTA [Concomitant]
     Route: 048
     Dates: start: 20090804
  7. LASIX [Concomitant]
     Indication: PROPHYLAXIS
     Dosage: TAB
     Route: 048
     Dates: end: 20110825

REACTIONS (1)
  - Interstitial lung disease [Recovering/Resolving]
